FAERS Safety Report 8146342-8 (Version None)
Quarter: 2012Q1

REPORT INFORMATION
  Report Type: 
  Country: None (occurrence: None)
  Receive Date: 20120217
  Receipt Date: 20111227
  Transmission Date: 20120608
  Serious: No
  Sender: FDA-Public Use
  Company Number: US-ABBOTT-11P-163-0886981-00

PATIENT
  Sex: Female
  Weight: 105.78 kg

DRUGS (4)
  1. SIMCOR [Suspect]
     Indication: HIGH DENSITY LIPOPROTEIN DECREASED
  2. LISINOPRIL [Concomitant]
     Indication: PRODUCT USED FOR UNKNOWN INDICATION
  3. SIMCOR [Suspect]
     Dosage: 1000/UNKNOWN
  4. LEVOTHROID [Concomitant]
     Indication: PRODUCT USED FOR UNKNOWN INDICATION

REACTIONS (5)
  - SKIN BURNING SENSATION [None]
  - HIGH DENSITY LIPOPROTEIN DECREASED [None]
  - FLUSHING [None]
  - PARAESTHESIA [None]
  - RASH PAPULAR [None]
